FAERS Safety Report 7001421-3 (Version None)
Quarter: 2010Q3

REPORT INFORMATION
  Report Type: 
  Country: None (occurrence: None)
  Receive Date: 20100920
  Receipt Date: 20100317
  Transmission Date: 20110219
  Serious: No
  Sender: FDA-Public Use
  Company Number: US-ASTRAZENECA-2010SE11674

PATIENT
  Age: 19048 Day
  Sex: Female
  Weight: 63.5 kg

DRUGS (4)
  1. SEROQUEL [Suspect]
     Dosage: 50-75 MG DAILY
     Route: 048
  2. SEROQUEL [Suspect]
     Route: 048
     Dates: start: 20100315
  3. SEROQUEL [Suspect]
     Route: 048
  4. ACYCLOVIR [Concomitant]
     Dosage: OCCASIONALLY

REACTIONS (2)
  - SLEEP DISORDER [None]
  - WRONG TECHNIQUE IN DRUG USAGE PROCESS [None]
